FAERS Safety Report 5863607-0 (Version None)
Quarter: 2008Q3

REPORT INFORMATION
  Report Type: 
  Country: None (occurrence: None)
  Receive Date: 20080828
  Receipt Date: 20080818
  Transmission Date: 20090109
  Serious: Yes (Other)
  Sender: FDA-Public Use
  Company Number: US-PFIZER INC-2008057333

PATIENT
  Sex: Male
  Weight: 105 kg

DRUGS (2)
  1. CELEBREX [Suspect]
  2. DIOVANE [Concomitant]
     Indication: HYPERTENSION

REACTIONS (5)
  - ERYTHEMA [None]
  - PERIPHERAL VASCULAR DISORDER [None]
  - SKIN DISCOLOURATION [None]
  - SKIN EXFOLIATION [None]
  - SKIN LESION [None]
